FAERS Safety Report 7558950-3 (Version None)
Quarter: 2011Q2

REPORT INFORMATION
  Report Type: 
  Country: None (occurrence: None)
  Receive Date: 20110621
  Receipt Date: 20110616
  Transmission Date: 20111010
  Serious: Yes (Death)
  Sender: FDA-Public Use
  Company Number: US-ASTELLAS-2011US001960

PATIENT
  Sex: Male

DRUGS (12)
  1. METOPROLOL TARTRATE [Concomitant]
     Indication: BLOOD PRESSURE
     Dosage: 10 MG, BID
     Route: 065
  2. ASPIRIN [Concomitant]
     Indication: ANTICOAGULANT THERAPY
     Dosage: UNK
     Route: 065
  3. PRAVACHOL [Concomitant]
     Indication: BLOOD CHOLESTEROL INCREASED
     Dosage: 20 MG, QHS
     Route: 065
  4. SYNTHROID [Concomitant]
     Indication: HYPOTHYROIDISM
     Dosage: 0.5 MG, UID/QD
     Route: 065
  5. KAYEXALATE [Concomitant]
     Indication: BLOOD POTASSIUM INCREASED
     Dosage: 15 G, TWICE A WEEK
     Route: 065
  6. CLONIDINE [Concomitant]
     Indication: BLOOD PRESSURE
     Dosage: 0.3 MG, TID
     Route: 065
  7. LANTUS [Concomitant]
     Indication: DIABETES MELLITUS
     Dosage: 17 U, UID/QD
     Route: 065
  8. PROGRAF [Suspect]
     Indication: HEART TRANSPLANT
     Dosage: 1 MG, BID
     Route: 065
     Dates: start: 20050501, end: 20110317
  9. GLYBURIDE [Concomitant]
     Indication: DIABETES MELLITUS
     Dosage: 5 MG, UID/QD
     Route: 065
  10. FERROUS SULFATE TAB [Concomitant]
     Indication: MINERAL SUPPLEMENTATION
     Dosage: 150 MG, BID
     Route: 065
  11. NOVOLOG [Concomitant]
     Indication: DIABETES MELLITUS
     Dosage: SLIDING SCALE
     Route: 065
  12. PREDNISONE [Concomitant]
     Indication: TRANSPLANT
     Dosage: 5 MG, UID/QD
     Route: 065

REACTIONS (1)
  - RENAL FAILURE [None]
